FAERS Safety Report 7552297-7 (Version None)
Quarter: 2011Q2

REPORT INFORMATION
  Report Type: 
  Country: None (occurrence: None)
  Receive Date: 20110616
  Receipt Date: 20110531
  Transmission Date: 20111010
  Serious: No
  Sender: FDA-Public Use
  Company Number: US-B.I. PHARMACEUTICALS,INC./RIDGEFIELD-2011-BP-08572BP

PATIENT
  Sex: Female
  Weight: 75 kg

DRUGS (14)
  1. LEVOTHROXIN [Concomitant]
     Dosage: 75 MCG
  2. CRESTOR [Concomitant]
     Dosage: 5 MG
  3. VENLAFAXINE [Concomitant]
  4. EVISTA [Concomitant]
     Dosage: 60 MG
  5. MELOXICAM [Concomitant]
     Dosage: 7.5 MG
  6. PRADAXA [Suspect]
     Indication: CEREBROVASCULAR ACCIDENT
  7. LOSARTAN POTASSIUM [Concomitant]
     Dosage: 25 MG
  8. VITAMIN D [Concomitant]
  9. CALCIUM 600 + D [Concomitant]
  10. PRADAXA [Suspect]
     Indication: ATRIAL FIBRILLATION
     Dosage: 300 MG
     Route: 048
     Dates: start: 20110311
  11. FLECAINIDE ACETATE [Concomitant]
     Dosage: 100 MG
  12. CO Q-10 [Concomitant]
     Dosage: 100 MG
  13. CLONAZEPAM [Concomitant]
  14. HEMATINIC PL [Concomitant]

REACTIONS (1)
  - INCREASED APPETITE [None]
